FAERS Safety Report 10891327 (Version 1)
Quarter: 2015Q1

REPORT INFORMATION
  Report Type: Spontaneous
  Country: US (occurrence: US)
  Receive Date: 20150306
  Receipt Date: 20150306
  Transmission Date: 20150721
  Serious: No
  Sender: FDA-Public Use
  Company Number: US-ASTRAZENECA-2015SE21139

PATIENT

DRUGS (2)
  1. NEXIUM 24HR [Suspect]
     Active Substance: ESOMEPRAZOLE MAGNESIUM
     Route: 048
  2. ASPIRIN. [Suspect]
     Active Substance: ASPIRIN
     Route: 065

REACTIONS (5)
  - Abdominal distension [Unknown]
  - Swelling face [Unknown]
  - Peripheral swelling [Unknown]
  - Drug interaction [Unknown]
  - Dyspnoea [Unknown]
